FAERS Safety Report 23310271 (Version 1)
Quarter: 2023Q4

REPORT INFORMATION
  Report Type: Spontaneous
  Country: US (occurrence: None)
  Receive Date: 20231218
  Receipt Date: 20231218
  Transmission Date: 20240110
  Serious: No
  Sender: FDA-Public Use
  Company Number: None

PATIENT
  Age: 28 Day
  Sex: Male
  Weight: 4.60 kg

DRUGS (3)
  1. BEYFORTUS [Suspect]
     Active Substance: NIRSEVIMAB-ALIP
     Indication: Immunisation
     Dosage: 1 ML ONCE INTRAMUSCULAR?
     Route: 030
     Dates: start: 20231218, end: 20231218
  2. cholecalciferol (VITAMIN D3) 10 mcg (400 units)/mL oral liquid [Concomitant]
     Dates: start: 20231127
  3. Hep B Engerix-B Pediatric vaccine [Concomitant]
     Dates: start: 20231120, end: 20231120

REACTIONS (1)
  - Incorrect dose administered [None]

NARRATIVE: CASE EVENT DATE: 20231218
